FAERS Safety Report 9820517 (Version 4)
Quarter: 2014Q1

REPORT INFORMATION
  Report Type: Spontaneous
  Country: MY (occurrence: MY)
  Receive Date: 20140116
  Receipt Date: 20140123
  Transmission Date: 20141002
  Serious: Yes (Other)
  Sender: FDA-Public Use
  Company Number: MY-PFIZER INC-2014011615

PATIENT
  Age: 37 Year
  Sex: Male

DRUGS (2)
  1. CONTROLOC [Suspect]
     Indication: PROPHYLAXIS AGAINST GASTROINTESTINAL ULCER
     Dosage: 40 MG, 1X/DAY
     Route: 042
  2. DILANTIN [Suspect]
     Indication: PROPHYLAXIS
     Dosage: 300 MG, 1X/DAY
     Route: 042

REACTIONS (1)
  - Drug reaction with eosinophilia and systemic symptoms [Unknown]
